FAERS Safety Report 9051908 (Version 1)
Quarter: 2013Q1

REPORT INFORMATION
  Report Type: Spontaneous
  Country: US (occurrence: None)
  Receive Date: 20130130
  Receipt Date: 20130130
  Transmission Date: 20140127
  Serious: Yes (Hospitalization)
  Sender: FDA-Public Use
  Company Number: None

PATIENT
  Age: 70 Year
  Sex: Male
  Weight: 99.7 kg

DRUGS (17)
  1. BORTEZOMIB [Suspect]
     Indication: B-CELL SMALL LYMPHOCYTIC LYMPHOMA
     Route: 042
     Dates: start: 20120730, end: 20120917
  2. TEMSIROLIMUS [Suspect]
     Indication: B-CELL SMALL LYMPHOCYTIC LYMPHOMA
     Route: 042
     Dates: start: 20120730, end: 20120917
  3. ACETAMINOPHEN [Concomitant]
  4. ACYCLOVIR [Concomitant]
  5. ALLOPURINOL [Concomitant]
  6. BACLOFEN [Concomitant]
  7. CIPROFLOXACIN ?CILOXAN [Concomitant]
  8. CITALOPRAM [Concomitant]
  9. CLONAZEPAM [Concomitant]
  10. CODEINE-GUAIFENESIN [Concomitant]
  11. DOCUSATE SODIUM ?COLACE [Concomitant]
  12. FEXOFENADINE [Concomitant]
  13. FLUCONAZOLE [Concomitant]
  14. HYDROCHLOROTHIAZIDE [Concomitant]
  15. LIDOCAINE-DIPHENHYD-AL-MAG-SIM -FIRST-MOUTHWASH BLM?- MUCOUS MEMBRANE [Concomitant]
  16. LORAZEPAM [Concomitant]
  17. OMEPRAZOLE [Concomitant]

REACTIONS (7)
  - Abdominal pain lower [None]
  - Constipation [None]
  - Fatigue [None]
  - Neutropenia [None]
  - Cough [None]
  - B-cell small lymphocytic lymphoma [None]
  - Malignant neoplasm progression [None]
